FAERS Safety Report 8302608 (Version 3)
Quarter: 2013Q4

REPORT INFORMATION
  Report Type: Report from Study
  Country: FR (occurrence: FR)
  Receive Date: 20111220
  Receipt Date: 20131105
  Transmission Date: 20140711
  Serious: Yes (Other)
  Sender: FDA-Public Use
  Company Number: FR-ROCHE-1020926

PATIENT
  Sex: 0

DRUGS (6)
  1. RITUXIMAB [Suspect]
     Indication: DIFFUSE LARGE B-CELL LYMPHOMA
     Route: 042
  2. PREDNISONE [Suspect]
     Indication: DIFFUSE LARGE B-CELL LYMPHOMA
     Route: 065
  3. PIXANTRONE [Suspect]
     Indication: DIFFUSE LARGE B-CELL LYMPHOMA
     Route: 065
  4. CYCLOPHOSPHAMIDE [Suspect]
     Indication: DIFFUSE LARGE B-CELL LYMPHOMA
     Route: 065
  5. DOXORUBICIN [Suspect]
     Indication: DIFFUSE LARGE B-CELL LYMPHOMA
     Route: 065
  6. VINCRISTINE [Suspect]
     Indication: DIFFUSE LARGE B-CELL LYMPHOMA
     Route: 065

REACTIONS (21)
  - Febrile neutropenia [Unknown]
  - Thrombocytopenia [Unknown]
  - Infection [Unknown]
  - Neutropenia [Unknown]
  - Ejection fraction decreased [Unknown]
  - Cardiac failure congestive [Unknown]
  - Troponin T increased [Unknown]
  - Pneumonia [Unknown]
  - Sepsis [Unknown]
  - Urinary tract infection [Unknown]
  - Leukopenia [Unknown]
  - Lymphopenia [Unknown]
  - Anaemia [Unknown]
  - Hypokalaemia [Unknown]
  - Dehydration [Unknown]
  - Deep vein thrombosis [Unknown]
  - Diarrhoea [Unknown]
  - Vomiting [Unknown]
  - Back pain [Unknown]
  - Fatigue [Unknown]
  - Asthenia [Unknown]
